FAERS Safety Report 9295793 (Version 6)
Quarter: 2015Q1

REPORT INFORMATION
  Report Type: Spontaneous
  Country: US (occurrence: US)
  Receive Date: 20130517
  Receipt Date: 20150114
  Transmission Date: 20150721
  Serious: Yes (Hospitalization, Other)
  Sender: FDA-Public Use
  Company Number: US-009507513-1305USA007051

PATIENT
  Sex: Female
  Weight: 83.54 kg

DRUGS (2)
  1. FOSAMAX [Suspect]
     Active Substance: ALENDRONATE SODIUM
     Indication: MENOPAUSAL SYMPTOMS
     Dosage: 5 MG, QD
     Route: 048
     Dates: start: 199712, end: 200208
  2. FOSAMAX [Suspect]
     Active Substance: ALENDRONATE SODIUM
     Dosage: 70 MG, QW
     Route: 048
     Dates: start: 200208, end: 200601

REACTIONS (37)
  - Pancreatitis [Unknown]
  - Colitis [Unknown]
  - Off label use [Unknown]
  - Femur fracture [Unknown]
  - Bone graft [Unknown]
  - Back pain [Unknown]
  - Medical device removal [Unknown]
  - Enteritis [Unknown]
  - Femur fracture [Recovering/Resolving]
  - Fracture nonunion [Unknown]
  - Haematocrit decreased [Unknown]
  - Cardiac murmur [Unknown]
  - Asthenia [Unknown]
  - Femur fracture [Unknown]
  - Pancreatitis acute [Recovering/Resolving]
  - Acute kidney injury [Unknown]
  - Device failure [Unknown]
  - Chest pain [Unknown]
  - Urine output decreased [Unknown]
  - Gastroenteritis [Unknown]
  - Fatigue [Unknown]
  - Cholelithiasis [Unknown]
  - Limb asymmetry [Unknown]
  - Type 2 diabetes mellitus [Unknown]
  - Nasal congestion [Unknown]
  - Blood glucose abnormal [Unknown]
  - Medical device removal [Unknown]
  - Coronary artery bypass [Unknown]
  - Internal fixation of fracture [Unknown]
  - Hip arthroplasty [Unknown]
  - Rhinorrhoea [Unknown]
  - Pruritus [Unknown]
  - Intramedullary rod insertion [Unknown]
  - Haemoglobin decreased [Unknown]
  - Hypercholesterolaemia [Unknown]
  - Depression [Unknown]
  - Dizziness [Not Recovered/Not Resolved]

NARRATIVE: CASE EVENT DATE: 199712
